FAERS Safety Report 8155437-4 (Version None)
Quarter: 2012Q1

REPORT INFORMATION
  Report Type: 
  Country: None (occurrence: None)
  Receive Date: 20120202
  Receipt Date: 20120125
  Transmission Date: 20120608
  Serious: Yes (Other)
  Sender: FDA-Public Use
  Company Number: CA-145214

PATIENT
  Sex: Male
  Weight: 86 kg

DRUGS (10)
  1. WINRHO SDF LIQUID [Suspect]
  2. TRANEXAMIC ACID [Concomitant]
  3. DEXAMETHASONE [Concomitant]
  4. DANAZOL [Concomitant]
  5. NADOLOL [Concomitant]
  6. ACETAMINOPHEN [Concomitant]
  7. FUROSEMIDE [Concomitant]
  8. PIPERACILLIN AND TAZOBACTAM [Concomitant]
  9. WINRHO SDF LIQUID [Suspect]
     Indication: IDIOPATHIC THROMBOCYTOPENIC PURPURA
     Dosage: (75 UG/KG TOTAL INTRAVENOUS (NOT OTHERWISE SPECIFIED)), (INTRAVENOUS (NOT OTHERWISE SPECIFIED)
     Route: 042
     Dates: start: 20110528, end: 20110528
  10. IMMUOGLOBULIN [Concomitant]

REACTIONS (8)
  - BLOOD LACTATE DEHYDROGENASE INCREASED [None]
  - BLOOD GLUCOSE INCREASED [None]
  - OVERDOSE [None]
  - HAEMOLYSIS [None]
  - ANTI-ERYTHROCYTE ANTIBODY POSITIVE [None]
  - LIVER TRANSPLANT [None]
  - HYPERBILIRUBINAEMIA [None]
  - HAEMOGLOBIN DECREASED [None]
